FAERS Safety Report 14223639 (Version 1)
Quarter: 2017Q4

REPORT INFORMATION
  Report Type: Report from Study
  Country: JP (occurrence: JP)
  Receive Date: 20171124
  Receipt Date: 20171124
  Transmission Date: 20180321
  Serious: Yes (Death, Other)
  Sender: FDA-Public Use
  Company Number: PHJP2016JP036903

PATIENT
  Age: 67 Year
  Sex: Female

DRUGS (13)
  1. ZYKADIA [Suspect]
     Active Substance: CERITINIB
     Dosage: 450 MG, QD
     Route: 048
     Dates: start: 20161025, end: 20161115
  2. ZYKADIA [Suspect]
     Active Substance: CERITINIB
     Indication: NON-SMALL CELL LUNG CANCER STAGE IIIB
     Dosage: 750 MG, QD
     Route: 048
     Dates: start: 20161004, end: 20161005
  3. ZYKADIA [Suspect]
     Active Substance: CERITINIB
     Dosage: 450 MG, QD
     Route: 048
     Dates: start: 20170613, end: 20170803
  4. FERROUS GLUCEPTATE [Concomitant]
     Active Substance: FERROUS GLUCEPTATE
     Indication: NON-SMALL CELL LUNG CANCER STAGE IIIB
     Dosage: 10 MG, UNK
     Route: 048
  5. ZYKADIA [Suspect]
     Active Substance: CERITINIB
     Dosage: 600 MG, QD
     Route: 048
     Dates: start: 20161006, end: 20161025
  6. ZYKADIA [Suspect]
     Active Substance: CERITINIB
     Dosage: 450 MG, QD
     Route: 048
     Dates: start: 20170824, end: 20170826
  7. ZYKADIA [Suspect]
     Active Substance: CERITINIB
     Dosage: 450 MG, QD
     Route: 048
     Dates: start: 20170405, end: 20170530
  8. CALCITRIOL. [Concomitant]
     Active Substance: CALCITRIOL
     Indication: NON-SMALL CELL LUNG CANCER STAGE IIIB
     Dosage: 0.5 UG, UNK
     Route: 048
  9. ASACOL [Concomitant]
     Active Substance: MESALAMINE
     Indication: NON-SMALL CELL LUNG CANCER STAGE IIIB
     Dosage: 400 MG, UNK
     Route: 048
  10. THYRADIN-S [Concomitant]
     Active Substance: LEVOTHYROXINE
     Indication: NON-SMALL CELL LUNG CANCER STAGE IIIB
     Dosage: 50 UG, UNK
     Route: 048
  11. PRAVASTATIN SODIUM. [Concomitant]
     Active Substance: PRAVASTATIN SODIUM
     Indication: NON-SMALL CELL LUNG CANCER STAGE IIIB
     Dosage: 5 MG, UNK
     Route: 048
  12. ZYKADIA [Suspect]
     Active Substance: CERITINIB
     Dosage: 300 MG, QD
     Route: 048
     Dates: start: 20161115, end: 20170405
  13. MIYA-BM [Concomitant]
     Active Substance: CLOSTRIDIUM BUTYRICUM SPORES STRAIN M-55
     Indication: NON-SMALL CELL LUNG CANCER STAGE IIIB
     Dosage: 4 DF, UNK
     Route: 048

REACTIONS (8)
  - Vomiting [Recovering/Resolving]
  - Nausea [Recovering/Resolving]
  - Non-small cell lung cancer stage IIIB [Fatal]
  - Alanine aminotransferase increased [Unknown]
  - Liver disorder [Recovering/Resolving]
  - Diarrhoea [Recovering/Resolving]
  - Malignant neoplasm progression [Fatal]
  - Aspartate aminotransferase increased [Unknown]

NARRATIVE: CASE EVENT DATE: 20161004
